FAERS Safety Report 20425603 (Version 1)
Quarter: 2022Q1

REPORT INFORMATION
  Report Type: Report from Study
  Country: US (occurrence: US)
  Receive Date: 20220204
  Receipt Date: 20220204
  Transmission Date: 20220423
  Serious: No
  Sender: FDA-Public Use
  Company Number: US-EXELIXIS-CABO-21039439

PATIENT
  Sex: Male
  Weight: 92.971 kg

DRUGS (19)
  1. CABOMETYX [Suspect]
     Active Substance: CABOZANTINIB S-MALATE
     Indication: Renal cancer
     Dosage: 60 MG, QD
     Route: 048
     Dates: start: 20210405
  2. TASIGNA [Concomitant]
     Active Substance: NILOTINIB
  3. DARZALEX [Concomitant]
     Active Substance: DARATUMUMAB
  4. IMODIUM A-D [Concomitant]
     Active Substance: LOPERAMIDE HYDROCHLORIDE
  5. TYLENOL [Concomitant]
     Active Substance: ACETAMINOPHEN
  6. VITAMIN D3 [Concomitant]
     Active Substance: CHOLECALCIFEROL
  7. OMEPRAZOLE [Concomitant]
     Active Substance: OMEPRAZOLE
  8. DEXAMETHASONE [Concomitant]
     Active Substance: DEXAMETHASONE
  9. SIMVASTATIN [Concomitant]
     Active Substance: SIMVASTATIN
  10. DUTASTERIDE AND TAMSULOSIN HCL [Concomitant]
  11. VITAMIN D2 [Concomitant]
     Active Substance: ERGOCALCIFEROL
  12. HYDRALAZINE [Concomitant]
     Active Substance: HYDRALAZINE HYDROCHLORIDE
  13. METHYLPREDNISOLONE [Concomitant]
     Active Substance: METHYLPREDNISOLONE
  14. JANUVIA [Concomitant]
     Active Substance: SITAGLIPTIN PHOSPHATE
  15. FUROSEMIDE [Concomitant]
     Active Substance: FUROSEMIDE
  16. CABERGOLINE [Concomitant]
     Active Substance: CABERGOLINE
  17. SYNTHROID [Concomitant]
     Active Substance: LEVOTHYROXINE SODIUM
  18. ACETAMINOPHEN\HYDROCODONE [Concomitant]
     Active Substance: ACETAMINOPHEN\HYDROCODONE
  19. PROCHLORPERAZINE MALEATE [Concomitant]
     Active Substance: PROCHLORPERAZINE MALEATE

REACTIONS (1)
  - Gastrooesophageal reflux disease [Unknown]
